FAERS Safety Report 15298928 (Version 1)
Quarter: 2018Q3

REPORT INFORMATION
  Report Type: Spontaneous
  Country: US (occurrence: US)
  Receive Date: 20180808
  Receipt Date: 20180808
  Transmission Date: 20181010
  Serious: Yes (Other)
  Sender: FDA-Public Use
  Company Number: None

PATIENT
  Age: 56 Year
  Sex: Female
  Weight: 60.75 kg

DRUGS (4)
  1. LEVOFLOXACIN 500MG [Suspect]
     Active Substance: LEVOFLOXACIN
     Indication: CITROBACTER INFECTION
     Dosage: ?          QUANTITY:1 TABLET(S);?
     Route: 048
     Dates: start: 20170722, end: 20170727
  2. TURMERIC [Concomitant]
     Active Substance: HERBALS\TURMERIC
  3. CALCIUM [Concomitant]
     Active Substance: CALCIUM
  4. VITAMIN D [Concomitant]
     Active Substance: CHOLECALCIFEROL

REACTIONS (7)
  - Arthralgia [None]
  - Influenza like illness [None]
  - Therapy cessation [None]
  - Tendon pain [None]
  - Fatigue [None]
  - Exercise tolerance decreased [None]
  - Mobility decreased [None]

NARRATIVE: CASE EVENT DATE: 20170727
